FAERS Safety Report 12491685 (Version 1)
Quarter: 2016Q2

REPORT INFORMATION
  Report Type: Spontaneous
  Country: US (occurrence: US)
  Receive Date: 20160623
  Receipt Date: 20160623
  Transmission Date: 20160815
  Serious: No
  Sender: FDA-Public Use
  Company Number: US-PFIZER INC-2016304258

PATIENT
  Age: 62 Year
  Sex: Female
  Weight: 91.61 kg

DRUGS (1)
  1. METHOTREXATE SODIUM. [Suspect]
     Active Substance: METHOTREXATE SODIUM
     Indication: RHEUMATOID ARTHRITIS
     Dosage: 15 MG, (6, 2.5 MG TABS/WEEK)
     Route: 048
     Dates: start: 201008

REACTIONS (1)
  - Drug ineffective [Unknown]
